FAERS Safety Report 9440098 (Version 3)
Quarter: 2013Q3

REPORT INFORMATION
  Report Type: Spontaneous
  Country: US (occurrence: US)
  Receive Date: 20130805
  Receipt Date: 20130904
  Transmission Date: 20140515
  Serious: Yes (Hospitalization)
  Sender: FDA-Public Use
  Company Number: US-PFIZER INC-2013224391

PATIENT
  Age: 67 Year
  Sex: Female

DRUGS (1)
  1. REVATIO [Suspect]
     Indication: ASPERGILLUS INFECTION
     Dosage: 20 MG, 3X/DAY
     Dates: start: 20130530

REACTIONS (4)
  - Fall [Unknown]
  - Upper limb fracture [Unknown]
  - Ankle fracture [Unknown]
  - Off label use [Unknown]
